FAERS Safety Report 7048079-5 (Version None)
Quarter: 2010Q4

REPORT INFORMATION
  Report Type: 
  Country: None (occurrence: None)
  Receive Date: 20101015
  Receipt Date: 20101006
  Transmission Date: 20110411
  Serious: Yes (Life-Threatening, Hospitalization)
  Sender: FDA-Public Use
  Company Number: B0679536A

PATIENT
  Age: 74 Year
  Sex: Female
  Weight: 80 kg

DRUGS (7)
  1. VALTREX [Suspect]
     Dosage: 1000MG THREE TIMES PER DAY
     Route: 048
     Dates: start: 20100907, end: 20100908
  2. ESCITALOPRAM [Concomitant]
     Dosage: 5MG PER DAY
     Route: 048
     Dates: start: 20070427, end: 20100909
  3. RISPERIDONE [Concomitant]
     Dosage: .5MG TWICE PER DAY
     Route: 048
     Dates: start: 20080814, end: 20100909
  4. CARBAMAZEPINE [Concomitant]
     Indication: EPILEPSY
     Dosage: 200MG THREE TIMES PER DAY
     Route: 048
     Dates: start: 20070427, end: 20100909
  5. LISINOPRIL [Concomitant]
     Indication: ESSENTIAL HYPERTENSION
     Dosage: 10MG PER DAY
     Route: 048
     Dates: start: 20100427, end: 20100909
  6. LACTITOL [Concomitant]
     Dosage: 10G TWICE PER DAY
     Route: 048
     Dates: start: 20070427, end: 20100909
  7. CALCIMAGON-D3 [Concomitant]
     Dates: start: 19991015, end: 20100909

REACTIONS (7)
  - APHASIA [None]
  - COMA [None]
  - ENCEPHALITIS [None]
  - HYPERKALAEMIA [None]
  - HYPONATRAEMIA [None]
  - LOSS OF CONSCIOUSNESS [None]
  - RENAL FAILURE ACUTE [None]
